FAERS Safety Report 5917318-3 (Version None)
Quarter: 2008Q4

REPORT INFORMATION
  Report Type: 
  Country: None (occurrence: None)
  Receive Date: 20081014
  Receipt Date: 20081006
  Transmission Date: 20090506
  Serious: Yes (Other)
  Sender: FDA-Public Use
  Company Number: US-ELI_LILLY_AND_COMPANY-US200809003981

PATIENT
  Age: 71 Year
  Sex: Female

DRUGS (7)
  1. FORTEO [Suspect]
     Indication: OSTEOPOROSIS
     Dosage: 20 UG, DAILY (1/D)
     Dates: start: 20070601, end: 20070101
  2. FORTEO [Suspect]
     Dosage: 20 UG, DAILY (1/D)
     Dates: end: 20080901
  3. MAXZIDE [Concomitant]
     Dosage: 25 MG, DAILY (1/D)
  4. VYTORIN [Concomitant]
  5. TOPROL-XL [Concomitant]
     Dosage: 25 MG, DAILY (1/D)
  6. PROTONIX [Concomitant]
  7. MOBIC [Concomitant]
     Dosage: 15 MG, UNK

REACTIONS (5)
  - ASTHENIA [None]
  - BLOOD PRESSURE DECREASED [None]
  - CARDIAC DISORDER [None]
  - FALL [None]
  - LOSS OF CONSCIOUSNESS [None]
